FAERS Safety Report 4656089-8 (Version None)
Quarter: 2005Q2

REPORT INFORMATION
  Report Type: 
  Country: None (occurrence: None)
  Receive Date: 20050505
  Receipt Date: 20050415
  Transmission Date: 20051028
  Serious: Yes (Death, Congenital Anomaly)
  Sender: FDA-Public Use
  Company Number: 139931USA

PATIENT
  Weight: 0.9662 kg

DRUGS (5)
  1. COPAXONE [Suspect]
     Indication: MULTIPLE SCLEROSIS
     Dates: start: 20031205, end: 20040819
  2. LEVOCARB [Concomitant]
  3. EFFEXOR [Concomitant]
  4. RITALIN [Concomitant]
  5. SERC [Concomitant]

REACTIONS (7)
  - AMNIOCENTESIS ABNORMAL [None]
  - DRUG EXPOSURE DURING PREGNANCY [None]
  - PLACENTAL DISORDER [None]
  - PREGNANCY [None]
  - SMALL FOR DATES BABY [None]
  - STILLBIRTH [None]
  - TRISOMY 21 [None]
